FAERS Safety Report 13737252 (Version 1)
Quarter: 2017Q3

REPORT INFORMATION
  Report Type: Spontaneous
  Country: FR (occurrence: FR)
  Receive Date: 20170710
  Receipt Date: 20170710
  Transmission Date: 20171127
  Serious: Yes (Life-Threatening, Hospitalization)
  Sender: FDA-Public Use
  Company Number: FR-PFIZER INC-2017293046

PATIENT
  Age: 24 Hour
  Sex: Female
  Weight: 1.5 kg

DRUGS (23)
  1. ONCOVIN [Suspect]
     Active Substance: VINCRISTINE SULFATE
     Indication: LYMPHOMA
     Dosage: FIRST COURSE OF R-CHOP PROTOCOL
     Route: 064
     Dates: start: 20140403
  2. ENDOXAN /00021101/ [Suspect]
     Active Substance: CYCLOPHOSPHAMIDE
     Dosage: FIRST COURSE OF BEACOPP PROTOCOL
     Route: 064
  3. PREDNISONE. [Suspect]
     Active Substance: PREDNISONE
     Dosage: FIRST COURSE OF BEACOPP PROTOCOL
     Route: 064
  4. ADRIAMYCIN [Suspect]
     Active Substance: DOXORUBICIN HYDROCHLORIDE
     Indication: LYMPHOMA
     Dosage: FIRST COURSE OF R-CHOP PROTOCOL
     Route: 064
     Dates: start: 20140403
  5. ADRIAMYCIN [Suspect]
     Active Substance: DOXORUBICIN HYDROCHLORIDE
     Dosage: SECOND COURSE OF R-CHOP PROTOCOL
     Route: 064
     Dates: start: 20140424
  6. ONCOVIN [Suspect]
     Active Substance: VINCRISTINE SULFATE
     Dosage: SECOND COURSE OF R-CHOP PROTOCOL
     Route: 064
     Dates: start: 20140424
  7. ONCOVIN [Suspect]
     Active Substance: VINCRISTINE SULFATE
     Dosage: SECOND COURSE OF BEACOPP PROTOCOL
     Route: 064
     Dates: start: 20140605
  8. PREDNISONE. [Suspect]
     Active Substance: PREDNISONE
     Dosage: SECOND COURSE OF BEACOPP PROTOCOL
     Route: 064
     Dates: start: 20140605
  9. MABTHERA [Suspect]
     Active Substance: RITUXIMAB
     Indication: LYMPHOMA
     Dosage: FIRST COURSE OF R-CHOP PROTOCOL
     Route: 064
     Dates: start: 20140403
  10. ENDOXAN /00021101/ [Suspect]
     Active Substance: CYCLOPHOSPHAMIDE
     Indication: LYMPHOMA
     Dosage: FIRST COURSE OF R-CHOP PROTOCOL
     Route: 064
     Dates: start: 20140403
  11. BLEOMYCIN [Suspect]
     Active Substance: BLEOMYCIN SULFATE
     Indication: LYMPHOMA
     Dosage: FIRST COURSE OF BEACOPP PROTOCOL
     Route: 064
  12. PREDNISONE. [Suspect]
     Active Substance: PREDNISONE
     Indication: LYMPHOMA
     Dosage: FIRST COURSE OF R-CHOP PROTOCOL
     Route: 064
     Dates: start: 20140403
  13. PREDNISONE. [Suspect]
     Active Substance: PREDNISONE
     Dosage: SECOND COURSE OF R-CHOP PROTOCOL
     Route: 064
     Dates: start: 20140424
  14. ETOPOSIDE. [Suspect]
     Active Substance: ETOPOSIDE
     Indication: LYMPHOMA
     Dosage: FIRST COURSE OF BEACOPP PROTOCOL
     Route: 064
  15. PROCARBAZINE [Concomitant]
     Active Substance: PROCARBAZINE
     Dosage: UNK
  16. BLEOMYCIN [Suspect]
     Active Substance: BLEOMYCIN SULFATE
     Dosage: SECOND COURSE OF BEACOPP PROTOCOL
     Route: 064
     Dates: start: 20140605
  17. ADRIAMYCIN [Suspect]
     Active Substance: DOXORUBICIN HYDROCHLORIDE
     Dosage: SECOND COURSE OF BEACOPP PROTOCOL
     Route: 064
     Dates: start: 20140605
  18. ENDOXAN /00021101/ [Suspect]
     Active Substance: CYCLOPHOSPHAMIDE
     Dosage: SECOND COURSE OF R-CHOP PROTOCOL
     Route: 064
     Dates: start: 20140424
  19. ENDOXAN /00021101/ [Suspect]
     Active Substance: CYCLOPHOSPHAMIDE
     Dosage: SECOND COURSE OF BEACOPP PROTOCOL
     Route: 064
     Dates: start: 20140605
  20. ONCOVIN [Suspect]
     Active Substance: VINCRISTINE SULFATE
     Dosage: FIRST COURSE OF BEACOPP PROTOCOL
     Route: 064
  21. ETOPOSIDE. [Suspect]
     Active Substance: ETOPOSIDE
     Dosage: SECOND COURSE OF BEACOPP PROTOCOL
     Route: 064
     Dates: start: 20140605
  22. ADRIAMYCIN [Suspect]
     Active Substance: DOXORUBICIN HYDROCHLORIDE
     Dosage: FIRST COURSE OF BEACOPP PROTOCOL
     Route: 064
  23. MABTHERA [Suspect]
     Active Substance: RITUXIMAB
     Dosage: SECOND COURSE OF R-CHOP PROTOCOL
     Route: 064
     Dates: start: 20140424

REACTIONS (3)
  - Anaemia [Unknown]
  - Maternal exposure during pregnancy [Recovered/Resolved]
  - Premature delivery [Recovered/Resolved]

NARRATIVE: CASE EVENT DATE: 20140403
